FAERS Safety Report 25925574 (Version 1)
Quarter: 2025Q4

REPORT INFORMATION
  Report Type: Spontaneous
  Country: US (occurrence: None)
  Receive Date: 20251014
  Receipt Date: 20251014
  Transmission Date: 20260118
  Serious: Yes (Disabling)
  Sender: FDA-CTU
  Company Number: None

PATIENT
  Age: 24 Year
  Sex: Male
  Weight: 70 kg

DRUGS (4)
  1. BRINTELLIX [Suspect]
     Active Substance: VORTIOXETINE HYDROBROMIDE
     Indication: Depression
     Dates: start: 20230301, end: 20230430
  2. VITAMIN B [Concomitant]
     Active Substance: VITAMIN B
  3. OMEGA 3 [Concomitant]
     Active Substance: CAPSAICIN
  4. MAGNESIUM [Concomitant]
     Active Substance: MAGNESIUM

REACTIONS (6)
  - Emotional poverty [None]
  - Anhedonia [None]
  - Sexual dysfunction [None]
  - Anorgasmia [None]
  - Erectile dysfunction [None]
  - Loss of libido [None]

NARRATIVE: CASE EVENT DATE: 20230501
